FAERS Safety Report 5713215-7 (Version None)
Quarter: 2008Q2

REPORT INFORMATION
  Report Type: 
  Country: None (occurrence: None)
  Receive Date: 20080422
  Receipt Date: 19960122
  Transmission Date: 20081010
  Serious: Yes (Death, Hospitalization)
  Sender: FDA-Public Use
  Company Number: US-ROCHE-57277

PATIENT
  Sex: Male
  Weight: 68.5 kg

DRUGS (16)
  1. MYCOPHENOLATE MOFETIL [Suspect]
     Route: 048
     Dates: start: 19950827, end: 19960102
  2. MYCOPHENOLATE MOFETIL [Suspect]
     Route: 048
     Dates: start: 19960102, end: 19960105
  3. MYCOPHENOLATE MOFETIL [Suspect]
     Route: 048
     Dates: start: 19960105, end: 19960122
  4. NYSTATIN [Concomitant]
     Route: 065
     Dates: start: 19950906, end: 19960128
  5. MAALOX [Concomitant]
     Route: 065
     Dates: start: 19950906, end: 19960128
  6. MAALOX [Concomitant]
     Route: 065
     Dates: start: 19950906, end: 19960128
  7. COLACE [Concomitant]
     Route: 065
     Dates: start: 19950906, end: 19960128
  8. ASPIRIN [Concomitant]
     Route: 048
     Dates: start: 19950906, end: 19960128
  9. BACTRIM DS [Concomitant]
     Route: 048
     Dates: start: 19950906, end: 19960128
  10. BACTRIM DS [Concomitant]
     Route: 048
     Dates: start: 19950906, end: 19960128
  11. DYNACIRC [Concomitant]
     Route: 065
     Dates: start: 19950906, end: 19960128
  12. SYNTHROID [Concomitant]
     Route: 065
     Dates: start: 19950906, end: 19960128
  13. SODIUM BICARBONATE [Concomitant]
     Route: 048
     Dates: start: 19950911, end: 19960128
  14. FERROUS GLUCONATE [Concomitant]
     Route: 065
     Dates: start: 19950914, end: 19960128
  15. DELTASONE [Concomitant]
     Route: 065
     Dates: start: 19950126, end: 19960128
  16. CSA [Concomitant]
     Route: 048
     Dates: start: 19950803, end: 19960128

REACTIONS (8)
  - ANAEMIA [None]
  - ASTHENIA [None]
  - CENTRAL NERVOUS SYSTEM LYMPHOMA [None]
  - CYTOMEGALOVIRUS INFECTION [None]
  - GASTROINTESTINAL HAEMORRHAGE [None]
  - LEUKOPENIA [None]
  - MENTAL STATUS CHANGES [None]
  - NEUTROPENIA [None]
